FAERS Safety Report 23220134 (Version 1)
Quarter: 2023Q4

REPORT INFORMATION
  Report Type: Spontaneous
  Country: CN (occurrence: CN)
  Receive Date: 20231123
  Receipt Date: 20231123
  Transmission Date: 20240110
  Serious: Yes (Other)
  Sender: FDA-Public Use
  Company Number: CN-ABBVIE-5503430

PATIENT
  Age: 90 Year
  Sex: Male
  Weight: 50 kg

DRUGS (3)
  1. VENETOCLAX [Suspect]
     Active Substance: VENETOCLAX
     Indication: Neoplasm
     Dosage: FORM STRENGTH WAS 100 MILLIGRAM
     Route: 048
     Dates: start: 20231004, end: 20231004
  2. VENETOCLAX [Suspect]
     Active Substance: VENETOCLAX
     Indication: Neoplasm
     Dosage: FORM STRENGTH WAS 200 MILLIGRAM?DURATION TEXT WAS DAY 2 TO 28
     Route: 048
     Dates: start: 20231005, end: 20231031
  3. VENETOCLAX [Suspect]
     Active Substance: VENETOCLAX
     Indication: Neoplasm
     Route: 048

REACTIONS (1)
  - Myelosuppression [Recovering/Resolving]

NARRATIVE: CASE EVENT DATE: 20231018
